FAERS Safety Report 25405792 (Version 2)
Quarter: 2025Q3

REPORT INFORMATION
  Report Type: Report from Study
  Country: US (occurrence: US)
  Receive Date: 20250606
  Receipt Date: 20250916
  Transmission Date: 20251020
  Serious: Yes (Hospitalization)
  Sender: BAUSCH AND LOMB
  Company Number: US-BAUSCH-BL-2025-007047

PATIENT
  Age: 49 Year
  Sex: Male

DRUGS (2)
  1. XIFAXAN [Suspect]
     Active Substance: RIFAXIMIN
     Indication: Hepatic encephalopathy
     Route: 048
     Dates: end: 202506
  2. XIFAXAN [Suspect]
     Active Substance: RIFAXIMIN
     Dosage: DURATION: 6 MONTHS, TREATMENT RESUMED
     Route: 048
     Dates: start: 202508

REACTIONS (5)
  - Haematemesis [Unknown]
  - Gastric varices [Unknown]
  - Ammonia increased [Recovered/Resolved]
  - Confusional state [Recovered/Resolved]
  - Therapy interrupted [Unknown]

NARRATIVE: CASE EVENT DATE: 20250526
